FAERS Safety Report 8862466 (Version 1)
Quarter: 2012Q4

REPORT INFORMATION
  Report Type: 
  Country: US (occurrence: US)
  Receive Date: 20121026
  Receipt Date: 20121026
  Transmission Date: 20130627
  Serious: No
  Sender: FDA-Public Use
  Company Number: US-ALLERGAN-1116539US

PATIENT
  Age: 71 Year
  Sex: Male

DRUGS (4)
  1. ALPHAGAN P [Suspect]
     Indication: GLAUCOMA
     Dosage: 1 Gtt, bid
     Route: 047
     Dates: start: 20111201, end: 20111213
  2. ALPHAGAN P [Suspect]
     Indication: INCREASED INTRAOCULAR PRESSURE
  3. XALATAN [Concomitant]
     Indication: GLAUCOMA
     Dosage: UNK
     Route: 047
  4. BETIMOL [Concomitant]
     Indication: GLAUCOMA
     Dosage: UNK
     Route: 047

REACTIONS (4)
  - Lip swelling [Recovering/Resolving]
  - Swollen tongue [Recovering/Resolving]
  - Nasal dryness [Recovering/Resolving]
  - Dry mouth [Recovering/Resolving]
